FAERS Safety Report 4549964-6 (Version None)
Quarter: 2005Q1

REPORT INFORMATION
  Report Type: 
  Country: None (occurrence: None)
  Receive Date: 20050110
  Receipt Date: 20041228
  Transmission Date: 20050727
  Serious: Yes (Other)
  Sender: FDA-Public Use
  Company Number: 0400050EN0020P

PATIENT
  Age: 5 Year
  Sex: Female
  Weight: 21 kg

DRUGS (4)
  1. ONCASPAR [Suspect]
     Indication: ACUTE LYMPHOCYTIC LEUKAEMIA
     Dosage: 2000 IU IM
     Route: 030
     Dates: start: 20041004, end: 20041004
  2. VINCRISTINE [Concomitant]
  3. DEXAMETHASONE [Concomitant]
  4. BACTRIM DS [Concomitant]

REACTIONS (1)
  - HYPERLIPIDAEMIA [None]
